FAERS Safety Report 6126449-7 (Version None)
Quarter: 2009Q1

REPORT INFORMATION
  Report Type: 
  Country: None (occurrence: None)
  Receive Date: 20090318
  Receipt Date: 20090305
  Transmission Date: 20090719
  Serious: Yes (Hospitalization)
  Sender: FDA-Public Use
  Company Number: 2009-192767-NL

PATIENT
  Age: 43 Year
  Sex: Female

DRUGS (16)
  1. MIRTAZAPINE [Suspect]
     Indication: DEPRESSION
     Dosage: 30 MG ORAL
     Route: 048
     Dates: start: 20081112, end: 20081125
  2. OLANZAPINE [Suspect]
     Indication: ABNORMAL BEHAVIOUR
     Dosage: 20 MG/10 MG ORAL
     Route: 048
     Dates: start: 20081113, end: 20081125
  3. OLANZAPINE [Suspect]
     Indication: ABNORMAL BEHAVIOUR
     Dosage: 20 MG/10 MG ORAL
     Route: 048
     Dates: start: 20081125, end: 20081126
  4. LOXAPINE SUCCINATE [Suspect]
     Indication: ABNORMAL BEHAVIOUR
     Dosage: DF/1 DF
     Dates: start: 20081112, end: 20081120
  5. LOXAPINE SUCCINATE [Suspect]
     Indication: ABNORMAL BEHAVIOUR
     Dosage: DF/1 DF
     Dates: start: 20081113
  6. OXAZEPAM [Suspect]
     Dosage: DF
     Dates: start: 20081112, end: 20081126
  7. VENLAFAXINE HYDROCHLORIDE [Concomitant]
  8. CLOMIPRAMINE HYDROCHLORIDE [Concomitant]
  9. CLORAZEPATE DIPOTASSIUM [Concomitant]
  10. HEPARIN-FRACTION, CALCIUM SALT [Concomitant]
  11. PARAFFIN, LIQUID [Concomitant]
  12. NORMACOL [Concomitant]
  13. AMISULPRIDE [Concomitant]
  14. ORNITHINE OXOGLURATE [Concomitant]
  15. AMOXICILLIN TRIHYDRATE [Concomitant]
  16. PLASMA-LYTE 56 AND DEXTROSE 5% IN PLASTIC CONTAINER [Concomitant]

REACTIONS (1)
  - CYTOLYTIC HEPATITIS [None]
